FAERS Safety Report 5936875-4 (Version None)
Quarter: 2008Q4

REPORT INFORMATION
  Report Type: 
  Country: None (occurrence: None)
  Receive Date: 20081031
  Receipt Date: 20081020
  Transmission Date: 20090506
  Serious: Yes (Other)
  Sender: FDA-Public Use
  Company Number: DE-JNJFOC-20081004380

PATIENT
  Age: 48 Year
  Sex: Female
  Weight: 65 kg

DRUGS (3)
  1. TOPAMAX MIGRANE [Suspect]
     Route: 048
  2. TOPAMAX MIGRANE [Suspect]
     Route: 048
  3. TOPAMAX MIGRANE [Suspect]
     Indication: MIGRAINE
     Route: 048

REACTIONS (6)
  - AMNESTIC DISORDER [None]
  - ANXIETY [None]
  - DEPRESSION [None]
  - HYPERACUSIS [None]
  - SUDDEN HEARING LOSS [None]
  - TINNITUS [None]
